FAERS Safety Report 7095724-4 (Version None)
Quarter: 2010Q4

REPORT INFORMATION
  Report Type: 
  Country: None (occurrence: None)
  Receive Date: 20101102
  Receipt Date: 20101015
  Transmission Date: 20110411
  Serious: Yes (Congenital Anomaly, Other)
  Sender: FDA-Public Use
  Company Number: AUR-APL-2010-02607

PATIENT

DRUGS (13)
  1. ALENDRONATE SODIUM [Suspect]
     Indication: SYSTEMIC LUPUS ERYTHEMATOSUS
     Dosage: 70MG-QD-TRANSPLACENTAL
     Route: 064
  2. ACETAMINOPHEN [Suspect]
     Dosage: TRANSPLACENTAL
     Route: 064
     Dates: start: 20090309, end: 20090420
  3. AZATHIOPRINE [Suspect]
     Indication: SYSTEMIC LUPUS ERYTHEMATOSUS
     Dosage: 50MG-QD-TRANSPLACENTAL
     Route: 064
     Dates: start: 20090309
  4. CHLORHEXIDINE GLUCONATE [Suspect]
     Dosage: TRANSPLACENTAL
     Route: 064
     Dates: start: 20090309, end: 20090420
  5. HYDROXYCHLOROQUINE SULFATE [Suspect]
     Indication: SYSTEMIC LUPUS ERYTHEMATOSUS
     Dosage: 200MG - QD - TRANSPLACENTAL
     Route: 064
     Dates: start: 20090318
  6. LACTULOSE [Suspect]
     Dosage: TRANSPLACENTAL
     Route: 064
     Dates: start: 20090309, end: 20090420
  7. METHYLPREDNISOLONE [Suspect]
     Dosage: TRANSPLACENTAL
     Route: 064
  8. MUPIROCIN [Suspect]
     Dosage: TRANSPLACENTAL
     Route: 064
     Dates: start: 20090309, end: 20090420
  9. PREDNISOLONE [Suspect]
     Dosage: TRANSPLACENTAL
     Route: 064
     Dates: start: 20090309
  10. SENNA [Suspect]
     Dosage: TRANSPLACENTAL
     Route: 064
     Dates: start: 20090309, end: 20090420
  11. SIMPLE LINCTUS [Suspect]
     Dosage: TRANSPLACENTAL
     Route: 064
     Dates: start: 20090309, end: 20090420
  12. ASPIRIN [Concomitant]
  13. FOLIC ACID [Concomitant]

REACTIONS (3)
  - ABORTION INDUCED [None]
  - CLEFT LIP AND PALATE [None]
  - MATERNAL DRUGS AFFECTING FOETUS [None]
